FAERS Safety Report 15990560 (Version 4)
Quarter: 2020Q1

REPORT INFORMATION
  Report Type: Spontaneous
  Country: IL (occurrence: IL)
  Receive Date: 20190221
  Receipt Date: 20200205
  Transmission Date: 20200409
  Serious: Yes (Death, Other)
  Sender: FDA-Public Use
  Company Number: IL-009507513-1804ISR013036

PATIENT
  Age: 52 Year
  Sex: Male

DRUGS (7)
  1. TACROLIMUS. [Concomitant]
     Active Substance: TACROLIMUS
  2. PREDNISONE. [Concomitant]
     Active Substance: PREDNISONE
  3. MYCOPHENOLATE MOFETIL. [Concomitant]
     Active Substance: MYCOPHENOLATE MOFETIL
  4. RESPRIM FORTE [Concomitant]
     Active Substance: SULFAMETHOXAZOLE\TRIMETHOPRIM
  5. INSULIN [Concomitant]
     Active Substance: INSULIN NOS
  6. POSACONAZOLE [Suspect]
     Active Substance: POSACONAZOLE
     Indication: ASPERGILLUS INFECTION
     Dosage: 400 MILLIGRAM, BID
     Route: 048
  7. POSACONAZOLE [Suspect]
     Active Substance: POSACONAZOLE
     Indication: MUCORMYCOSIS

REACTIONS (2)
  - Drug ineffective [Unknown]
  - Aspergillus infection [Fatal]
